FAERS Safety Report 7507292-0 (Version None)
Quarter: 2011Q2

REPORT INFORMATION
  Report Type: 
  Country: None (occurrence: None)
  Receive Date: 20110526
  Receipt Date: 20110515
  Transmission Date: 20111010
  Serious: Yes (Hospitalization, Other)
  Sender: FDA-Public Use
  Company Number: FR-WATSON-2011-06632

PATIENT
  Age: 60 Year
  Sex: Male
  Weight: 100 kg

DRUGS (4)
  1. DIAMICRON [Concomitant]
     Indication: PRODUCT USED FOR UNKNOWN INDICATION
     Dosage: UNK
     Route: 065
  2. PRAVIGARD PAC (COPACKAGED) [Concomitant]
     Indication: PRODUCT USED FOR UNKNOWN INDICATION
     Dosage: UNK
     Route: 065
  3. RAPAFLO [Suspect]
     Indication: BENIGN PROSTATIC HYPERPLASIA
     Dosage: 8 MG, DAILY
     Route: 048
     Dates: start: 20110202, end: 20110509
  4. RAPAFLO [Suspect]
     Dosage: 4 MG, DAILY
     Route: 048
     Dates: start: 20110510

REACTIONS (4)
  - EYE MOVEMENT DISORDER [None]
  - ORTHOSTATIC HYPOTENSION [None]
  - MALAISE [None]
  - CHEST PAIN [None]
